FAERS Safety Report 6475279-5 (Version None)
Quarter: 2009Q4

REPORT INFORMATION
  Report Type: 
  Country: None (occurrence: None)
  Receive Date: 20091119
  Receipt Date: 20090924
  Transmission Date: 20100525
  Serious: No
  Sender: FDA-Public Use
  Company Number: WAES 0909USA04048

PATIENT
  Age: 75 Year
  Sex: Female

DRUGS (2)
  1. JANUVIA [Suspect]
     Indication: DIABETES MELLITUS
     Dosage: 100 MG/DAILY/PO
     Route: 048
     Dates: start: 20090907, end: 20090901
  2. ALBUTEROL [Concomitant]

REACTIONS (6)
  - BACTERIAL TEST POSITIVE [None]
  - NASAL CONGESTION [None]
  - PAIN OF SKIN [None]
  - PRURITUS [None]
  - SKIN DISORDER [None]
  - URTICARIA [None]
